FAERS Safety Report 8840830 (Version 1)
Quarter: 2012Q4

REPORT INFORMATION
  Report Type: 
  Country: US (occurrence: US)
  Receive Date: 20121015
  Receipt Date: 20121015
  Transmission Date: 20130627
  Serious: No
  Sender: FDA-Public Use
  Company Number: US-ASTRAZENECA-2012SE72705

PATIENT
  Age: 73 Year
  Sex: Female
  Weight: 91.2 kg

DRUGS (8)
  1. PRILOSEC [Suspect]
     Route: 048
     Dates: start: 20120817
  2. SYMBICORT [Suspect]
     Dosage: 160/4.5 UG TWO INHALATIONS TWO TIMES A DAY
     Route: 055
     Dates: end: 20120914
  3. SPIRIVA [Suspect]
     Route: 055
     Dates: start: 20120817, end: 20120817
  4. MIRAPEX [Suspect]
     Route: 048
     Dates: start: 20120621
  5. FLUOXETINE [Suspect]
     Route: 048
     Dates: start: 20120621
  6. ALBUTEROL SULFATE [Suspect]
     Dosage: 90 UG TWO INHALATIONS 2-3 HOURS AS NEEDED
     Route: 055
     Dates: start: 20120621, end: 20120621
  7. ADVAIR DISKUS [Suspect]
     Dosage: 250 UG - 50 UG ONE INHALATION TWO TIMES A DAY
     Route: 055
     Dates: start: 20120817, end: 20120817
  8. PREDNISONE [Suspect]
     Dosage: TAKE AS DIRECTED
     Route: 048
     Dates: start: 20120914

REACTIONS (12)
  - Chronic obstructive pulmonary disease [Unknown]
  - Cough [Unknown]
  - Anxiety [Unknown]
  - Restless legs syndrome [Unknown]
  - Gastrooesophageal reflux disease [Unknown]
  - Osteoarthritis [Unknown]
  - Bone disorder [Unknown]
  - Chondropathy [Unknown]
  - Oral pain [Unknown]
  - Glossodynia [Unknown]
  - Oedema peripheral [Unknown]
  - Depression [Unknown]
